FAERS Safety Report 11151299 (Version 2)
Quarter: 2015Q2

REPORT INFORMATION
  Report Type: Spontaneous
  Country: IT (occurrence: IT)
  Receive Date: 20150601
  Receipt Date: 20150604
  Transmission Date: 20150821
  Serious: Yes (Other)
  Sender: FDA-Public Use
  Company Number: IT-JNJFOC-20150519962

PATIENT
  Age: 43 Year
  Sex: Male
  Weight: 87 kg

DRUGS (3)
  1. REMICADE [Suspect]
     Active Substance: INFLIXIMAB
     Indication: COLITIS ULCERATIVE
     Route: 042
     Dates: start: 20100101, end: 20121231
  2. AZATIOPRINA [Suspect]
     Active Substance: AZATHIOPRINE
     Indication: COLITIS ULCERATIVE
     Dosage: STRENGTH: 50 MG
     Route: 048
     Dates: start: 19970101
  3. MESAVANCOL [Suspect]
     Active Substance: MESALAMINE
     Indication: COLITIS ULCERATIVE
     Route: 048
     Dates: start: 20100101

REACTIONS (3)
  - Human papilloma virus test positive [Unknown]
  - Squamous cell carcinoma [Unknown]
  - Bowenoid papulosis [Unknown]

NARRATIVE: CASE EVENT DATE: 20141001
